FAERS Safety Report 4381839-8 (Version None)
Quarter: 2004Q2

REPORT INFORMATION
  Report Type: 
  Country: None (occurrence: None)
  Receive Date: 20040615
  Receipt Date: 20040602
  Transmission Date: 20050107
  Serious: Yes (Hospitalization)
  Sender: FDA-Public Use
  Company Number: 2004036162

PATIENT
  Age: 53 Year
  Sex: Male

DRUGS (1)
  1. VIAGRA [Suspect]
     Indication: ERECTILE DYSFUNCTION
     Dosage: 50 MG (1 ), ORAL
     Route: 048
     Dates: start: 20040527

REACTIONS (3)
  - HAEMOPTYSIS [None]
  - PNEUMONIA [None]
  - TREATMENT NONCOMPLIANCE [None]
